FAERS Safety Report 22100122 (Version 1)
Quarter: 2023Q1

REPORT INFORMATION
  Report Type: Spontaneous
  Country: CH (occurrence: CH)
  Receive Date: 20230315
  Receipt Date: 20230315
  Transmission Date: 20230418
  Serious: Yes (Other)
  Sender: FDA-Public Use
  Company Number: CH-FreseniusKabi-FK202303430

PATIENT
  Age: 85 Year
  Sex: Male

DRUGS (7)
  1. ETOPOSIDE [Suspect]
     Active Substance: ETOPOSIDE
     Indication: Prophylactic chemotherapy
  2. PREDNISONE [Suspect]
     Active Substance: PREDNISONE
     Indication: Prophylactic chemotherapy
  3. VINCRISTINE [Suspect]
     Active Substance: VINCRISTINE
     Indication: Prophylactic chemotherapy
  4. CYCLOPHOSPHAMIDE [Suspect]
     Active Substance: CYCLOPHOSPHAMIDE
     Indication: Prophylactic chemotherapy
  5. DOXORUBICIN [Suspect]
     Active Substance: DOXORUBICIN
     Indication: Prophylactic chemotherapy
  6. RITUXIMAB [Suspect]
     Active Substance: RITUXIMAB
     Indication: Prophylactic chemotherapy
  7. METHOTREXATE [Suspect]
     Active Substance: METHOTREXATE
     Indication: Prophylactic chemotherapy
     Dosage: 2 CYCLES OF HIGH-DOSE METHOTREXATE (MTX)

REACTIONS (1)
  - Hepatitis B reactivation [Unknown]
